FAERS Safety Report 24363014 (Version 1)
Quarter: 2024Q3

REPORT INFORMATION
  Report Type: Report from Study
  Country: US (occurrence: US)
  Receive Date: 20240925
  Receipt Date: 20240925
  Transmission Date: 20241016
  Serious: Yes (Hospitalization)
  Sender: BAYER
  Company Number: US-BAYER-2024A080751

PATIENT
  Age: 94 Year
  Sex: Male

DRUGS (2)
  1. NUBEQA [Suspect]
     Active Substance: DAROLUTAMIDE
     Indication: Prostate cancer
     Dosage: 300 MG, BID
     Route: 048
     Dates: start: 20240408, end: 202408
  2. LUPRON [Concomitant]
     Active Substance: LEUPROLIDE ACETATE
     Dosage: UNK

REACTIONS (2)
  - Heart rate decreased [Not Recovered/Not Resolved]
  - Fatigue [Not Recovered/Not Resolved]

NARRATIVE: CASE EVENT DATE: 20240501
